FAERS Safety Report 16819326 (Version 2)
Quarter: 2019Q4

REPORT INFORMATION
  Report Type: Report from Study
  Country: ES (occurrence: ES)
  Receive Date: 20190917
  Receipt Date: 20191003
  Transmission Date: 20200122
  Serious: Yes (Death, Hospitalization)
  Sender: FDA-Public Use
  Company Number: ES-TEVA-2019-ES-1108434

PATIENT
  Age: 64 Year
  Sex: Male

DRUGS (3)
  1. METHOTREXATE. [Suspect]
     Active Substance: METHOTREXATE
     Indication: PYREXIA
     Route: 065
  2. LOSARTAN. [Interacting]
     Active Substance: LOSARTAN
     Route: 065
  3. OMEPRAZOLE. [Suspect]
     Active Substance: OMEPRAZOLE
     Route: 065

REACTIONS (3)
  - Drug interaction [Fatal]
  - Toxicity to various agents [Fatal]
  - Pneumonitis [Fatal]
